FAERS Safety Report 21230147 (Version 2)
Quarter: 2022Q3

REPORT INFORMATION
  Report Type: Spontaneous
  Country: US (occurrence: US)
  Receive Date: 20220818
  Receipt Date: 20220823
  Transmission Date: 20221027
  Serious: No
  Sender: FDA-Public Use
  Company Number: US-SANOFI-01233650

PATIENT
  Age: 49 Year
  Sex: Male

DRUGS (1)
  1. ADMELOG [Suspect]
     Active Substance: INSULIN LISPRO
     Indication: Type 1 diabetes mellitus
     Dosage: 40 UNITS AM 40 UNITS AFTERNOON 38 UNITS PM

REACTIONS (2)
  - Blood glucose increased [Unknown]
  - Liquid product physical issue [Unknown]
